FAERS Safety Report 9015426 (Version 2)
Quarter: 2013Q1

REPORT INFORMATION
  Report Type: Spontaneous
  Country: US (occurrence: None)
  Receive Date: 20130102
  Receipt Date: 20130131
  Transmission Date: 20140127
  Serious: Yes (Death)
  Sender: FDA-Public Use
  Company Number: 2012-671

PATIENT
  Age: 55 Year
  Sex: Female

DRUGS (1)
  1. FAZACLO [Suspect]
     Route: 048
     Dates: start: 20070102, end: 20121130

REACTIONS (2)
  - Death [None]
  - Renal failure [None]
